FAERS Safety Report 5738176-6 (Version None)
Quarter: 2008Q2

REPORT INFORMATION
  Report Type: 
  Country: None (occurrence: None)
  Receive Date: 20080514
  Receipt Date: 20080502
  Transmission Date: 20081010
  Serious: Yes (Disabling)
  Sender: FDA-Public Use
  Company Number: BR-PFIZER INC-2008009117

PATIENT
  Sex: Female
  Weight: 65 kg

DRUGS (2)
  1. CHANTIX [Suspect]
     Indication: SMOKING CESSATION THERAPY
     Route: 048
  2. CONTRACEPTIVE, UNSPECIFIED [Concomitant]

REACTIONS (6)
  - DIZZINESS [None]
  - DUODENITIS [None]
  - GASTRITIS [None]
  - HEADACHE [None]
  - PRURITUS GENERALISED [None]
  - VOMITING [None]
